FAERS Safety Report 9106712 (Version 1)
Quarter: 2013Q1

REPORT INFORMATION
  Report Type: Report from Study
  Country: NL (occurrence: NL)
  Receive Date: 20130221
  Receipt Date: 20130221
  Transmission Date: 20140127
  Serious: Yes (Hospitalization)
  Sender: FDA-Public Use
  Company Number: NL-BRISTOL-MYERS SQUIBB COMPANY-16172173

PATIENT
  Age: 66 Year
  Sex: Male

DRUGS (1)
  1. IPILIMUMAB [Suspect]
     Indication: PROSTATE CANCER
     Dosage: 940 MG TOTAL DOSE
     Route: 042
     Dates: start: 20110901, end: 20111014

REACTIONS (1)
  - Dehydration [Recovered/Resolved]
